FAERS Safety Report 6411933-9 (Version None)
Quarter: 2009Q4

REPORT INFORMATION
  Report Type: 
  Country: None (occurrence: None)
  Receive Date: 20091021
  Receipt Date: 20091007
  Transmission Date: 20100525
  Serious: Yes (Hospitalization)
  Sender: FDA-Public Use
  Company Number: 2009SP002654

PATIENT
  Sex: Male

DRUGS (4)
  1. LUNESTA [Suspect]
     Dosage: 3 MG;ORAL ; 3 MG;PRN;ORAL
     Route: 048
     Dates: start: 20080101, end: 20090101
  2. LUNESTA [Suspect]
     Dosage: 3 MG;ORAL ; 3 MG;PRN;ORAL
     Route: 048
     Dates: start: 20090101
  3. CON MEDS [Concomitant]
  4. PREV MEDS [Concomitant]

REACTIONS (1)
  - OVERDOSE [None]
